FAERS Safety Report 6165411-5 (Version None)
Quarter: 2009Q2

REPORT INFORMATION
  Report Type: 
  Country: None (occurrence: None)
  Receive Date: 20090423
  Receipt Date: 20090415
  Transmission Date: 20091009
  Serious: Yes (Life-Threatening)
  Sender: FDA-Public Use
  Company Number: NL-WATSON-2009-02591

PATIENT

DRUGS (1)
  1. MORPHINE SULFATE INJ [Suspect]
     Indication: ANALGESIA
     Dosage: UNKNOWN
     Route: 065

REACTIONS (2)
  - MUSCLE RIGIDITY [None]
  - NEONATAL RESPIRATORY DISTRESS SYNDROME [None]
